FAERS Safety Report 7782142-6 (Version None)
Quarter: 2011Q3

REPORT INFORMATION
  Report Type: 
  Country: None (occurrence: None)
  Receive Date: 20110927
  Receipt Date: 20110922
  Transmission Date: 20111222
  Serious: Yes (Life-Threatening, Hospitalization, Other)
  Sender: FDA-Public Use
  Company Number: US-ASTRAZENECA-2011SE47005

PATIENT
  Age: 61 Year
  Sex: Female
  Weight: 81.6 kg

DRUGS (9)
  1. CITALOPRAM [Concomitant]
     Route: 048
  2. GABAPENTIN [Concomitant]
  3. GABAPENTIN [Concomitant]
     Route: 048
  4. SEROQUEL [Suspect]
     Indication: SCHIZOPHRENIFORM DISORDER
     Route: 048
  5. PROPRANOLOL [Concomitant]
     Route: 048
  6. XANAX [Concomitant]
     Route: 048
  7. SEROQUEL [Suspect]
     Indication: BIPOLAR DISORDER
     Route: 048
  8. XANAX [Concomitant]
     Indication: ANXIETY
  9. MIRTAZAPINE [Concomitant]

REACTIONS (13)
  - DRUG DOSE OMISSION [None]
  - PSYCHIATRIC DECOMPENSATION [None]
  - DEPRESSION [None]
  - BEDRIDDEN [None]
  - MALAISE [None]
  - DRUG WITHDRAWAL SYNDROME [None]
  - SUICIDAL IDEATION [None]
  - SCOLIOSIS [None]
  - SCIATICA [None]
  - SPINAL DEFORMITY [None]
  - SUICIDE ATTEMPT [None]
  - EXOSTOSIS [None]
  - INTERVERTEBRAL DISC PROTRUSION [None]
